FAERS Safety Report 13470200 (Version 8)
Quarter: 2017Q4

REPORT INFORMATION
  Report Type: Report from Study
  Country: PL (occurrence: PL)
  Receive Date: 20170423
  Receipt Date: 20171005
  Transmission Date: 20180320
  Serious: Yes (Death, Hospitalization, Other)
  Sender: FDA-Public Use
  Company Number: PL-UCBSA-2017015369

PATIENT
  Age: 40 Year
  Sex: Female
  Weight: 115.3 kg

DRUGS (3)
  1. NUVARING [Concomitant]
     Active Substance: ETHINYL ESTRADIOL\ETONOGESTREL
     Indication: CONTRACEPTION
     Dosage: 21 RINGS PER 28 DAYS
     Route: 067
     Dates: start: 2013
  2. CERTOLIZUMAB PEGOL [Suspect]
     Active Substance: CERTOLIZUMAB PEGOL
     Indication: PSORIASIS
     Dosage: 200 MG, EV 2 WEEKS(QOW)
     Route: 058
     Dates: start: 20160607, end: 20170213
  3. CERTOLIZUMAB PEGOL [Suspect]
     Active Substance: CERTOLIZUMAB PEGOL
     Dosage: 400 MG, EV 2 WEEKS(QOW)
     Route: 058
     Dates: start: 20150708, end: 20160606

REACTIONS (6)
  - Disseminated intravascular coagulation [Fatal]
  - Cardiac arrest [Fatal]
  - Hepatic failure [Fatal]
  - Jaundice [Not Recovered/Not Resolved]
  - Distributive shock [Fatal]
  - Pancreatitis haemorrhagic [Fatal]

NARRATIVE: CASE EVENT DATE: 201704
